FAERS Safety Report 15806512 (Version 1)
Quarter: 2019Q1

REPORT INFORMATION
  Report Type: Spontaneous
  Country: DE (occurrence: DE)
  Receive Date: 20190110
  Receipt Date: 20190110
  Transmission Date: 20190417
  Serious: Yes (Death, Life-Threatening, Hospitalization, Other)
  Sender: FDA-Public Use
  Company Number: DE-SA-2018SA162341

PATIENT
  Age: 73 Year
  Sex: Female
  Weight: 106 kg

DRUGS (59)
  1. OXALIPLATIN. [Suspect]
     Active Substance: OXALIPLATIN
     Dosage: 140 MG, UNK
     Route: 042
     Dates: start: 20140121, end: 20140121
  2. OXALIPLATIN. [Suspect]
     Active Substance: OXALIPLATIN
     Dosage: 140 MG, UNK
     Route: 042
     Dates: start: 20140211, end: 20140211
  3. BEVACIZUMAB. [Suspect]
     Active Substance: BEVACIZUMAB
     Dosage: 530 MG, QOW
     Route: 042
     Dates: start: 20131008, end: 20131008
  4. FOLINIC ACID [Suspect]
     Active Substance: LEUCOVORIN
     Dosage: 640 MG, UNK
     Route: 042
     Dates: start: 20140121, end: 20140122
  5. FOLINIC ACID [Suspect]
     Active Substance: LEUCOVORIN
     Dosage: 720 MG, UNK
     Route: 042
     Dates: start: 20140617, end: 20140618
  6. FOLINIC ACID [Suspect]
     Active Substance: LEUCOVORIN
     Dosage: 720 MG, UNK
     Route: 042
     Dates: start: 20140701, end: 20140702
  7. FOLINIC ACID [Suspect]
     Active Substance: LEUCOVORIN
     Dosage: 720 MG, UNK
     Route: 042
     Dates: start: 20140916, end: 20140917
  8. FOLINIC ACID [Suspect]
     Active Substance: LEUCOVORIN
     Dosage: 640 MG, UNK
     Route: 042
     Dates: start: 20140211, end: 20140212
  9. NOVAMINSULFON [Concomitant]
     Active Substance: METAMIZOLE
     Dosage: 30 DROP, QD
     Route: 048
  10. FLUOROURACIL. [Suspect]
     Active Substance: FLUOROURACIL
     Dosage: 1600 MG, UNK
     Route: 042
     Dates: start: 20131008, end: 20131009
  11. FLUOROURACIL. [Suspect]
     Active Substance: FLUOROURACIL
     Dosage: UNK, (1600 MG BOLUS,2400 MG DRIP )
     Route: 042
     Dates: start: 20140415, end: 20140415
  12. FOLINIC ACID [Suspect]
     Active Substance: LEUCOVORIN
     Dosage: 720 MG, UNK
     Route: 042
     Dates: start: 20140715, end: 20140716
  13. FOLINIC ACID [Suspect]
     Active Substance: LEUCOVORIN
     Dosage: 640 MG, UNK
     Route: 042
     Dates: start: 20131210, end: 20131211
  14. PANTOPRAZOLE SODIUM. [Concomitant]
     Active Substance: PANTOPRAZOLE SODIUM
     Indication: PROPHYLAXIS
     Dosage: 40 MG, QD
     Route: 048
  15. LONQUEX [Concomitant]
     Active Substance: LIPEGFILGRASTIM
     Indication: PROPHYLAXIS
     Dosage: UNK
     Route: 058
     Dates: start: 20140716, end: 20140716
  16. OXALIPLATIN. [Suspect]
     Active Substance: OXALIPLATIN
     Dosage: 140 MG
     Route: 042
     Dates: start: 20131210, end: 20131210
  17. OXALIPLATIN. [Suspect]
     Active Substance: OXALIPLATIN
     Dosage: 140 MG, QOW
     Route: 042
     Dates: start: 20140326, end: 20140327
  18. FLUOROURACIL. [Suspect]
     Active Substance: FLUOROURACIL
     Dosage: 1600 MG 2400 MG DRIP
     Route: 042
     Dates: start: 20140326, end: 20140327
  19. FLUOROURACIL. [Suspect]
     Active Substance: FLUOROURACIL
     Dosage: 1280 MG, UNK
     Route: 042
     Dates: start: 20140121, end: 20140122
  20. FLUOROURACIL. [Suspect]
     Active Substance: FLUOROURACIL
     Dosage: 720 MG, QD
     Route: 042
     Dates: start: 20140701, end: 20140702
  21. FLUOROURACIL. [Suspect]
     Active Substance: FLUOROURACIL
     Dosage: UNK,(1280 MG BOLUS, 1900 MG DRIP)
     Route: 042
     Dates: start: 20140211, end: 20140212
  22. FLUOROURACIL. [Suspect]
     Active Substance: FLUOROURACIL
     Dosage: UNK, (720 MG BOLUS, 1800 MG DRIP)
     Route: 042
     Dates: start: 20140715, end: 20140716
  23. FLUOROURACIL. [Suspect]
     Active Substance: FLUOROURACIL
     Dosage: UNK, QOW, (720 MG BOLUS, 1800 MG DRIP)
     Route: 042
     Dates: start: 20140617, end: 20140618
  24. BEVACIZUMAB. [Suspect]
     Active Substance: BEVACIZUMAB
     Indication: COLORECTAL CANCER METASTATIC
     Dosage: 420 MG, QOW
     Route: 042
     Dates: start: 20131210, end: 20131210
  25. FLUOROURACIL. [Suspect]
     Active Substance: FLUOROURACIL
     Dosage: 1280 MG BOLUS 1900 MG DRIP
     Route: 042
     Dates: start: 20131210, end: 20131211
  26. FOLINIC ACID [Suspect]
     Active Substance: LEUCOVORIN
     Indication: COLORECTAL CANCER METASTATIC
     Dosage: 800 MG
     Route: 042
     Dates: start: 20131029, end: 20131030
  27. FOLINIC ACID [Suspect]
     Active Substance: LEUCOVORIN
     Dosage: 720 MG, UNK
     Route: 042
     Dates: start: 20140822, end: 20140823
  28. RAMIPRIL. [Concomitant]
     Active Substance: RAMIPRIL
     Indication: HYPERTENSION
     Dosage: 2.5 MG, QD
     Route: 048
  29. FLUOROURACIL. [Suspect]
     Active Substance: FLUOROURACIL
     Dosage: 720 MG, UNK
     Route: 042
     Dates: start: 20140603, end: 20140604
  30. FLUOROURACIL. [Suspect]
     Active Substance: FLUOROURACIL
     Dosage: UNK, (720 MG BOLUS, 1800 MG DRIP)
     Route: 042
     Dates: start: 20140930, end: 20141001
  31. FOLINIC ACID [Suspect]
     Active Substance: LEUCOVORIN
     Dosage: 800 MG, QOW
     Route: 042
     Dates: start: 20140326, end: 20140327
  32. FOLINIC ACID [Suspect]
     Active Substance: LEUCOVORIN
     Dosage: 640 MG, UNK
     Route: 042
     Dates: start: 20140211, end: 20140212
  33. GLANDOMED [Concomitant]
     Indication: MUCOSAL INFLAMMATION
     Dosage: UNK
     Route: 065
     Dates: start: 20131029
  34. OPIUM [MORPHINE] [Concomitant]
     Dosage: UNK UNK, QD
     Route: 048
     Dates: start: 20140227
  35. OXALIPLATIN. [Suspect]
     Active Substance: OXALIPLATIN
     Dosage: UNK
     Route: 042
     Dates: start: 20131029, end: 20131029
  36. FLUOROURACIL. [Suspect]
     Active Substance: FLUOROURACIL
     Dosage: 720 MG
     Route: 042
     Dates: start: 20140916, end: 20140917
  37. FLUOROURACIL. [Suspect]
     Active Substance: FLUOROURACIL
     Dosage: 720 MG, QOW,1800 MG DRIP
     Route: 042
     Dates: start: 20140930, end: 20141001
  38. FLUOROURACIL. [Suspect]
     Active Substance: FLUOROURACIL
     Dosage: UNK,(1280 MG BOLUS,1900 MG DRIP)
     Route: 042
     Dates: start: 20140121, end: 20140122
  39. FLUOROURACIL. [Suspect]
     Active Substance: FLUOROURACIL
     Dosage: UNK, (720 MG BOLUS, 1800 MG DRIP)
     Route: 042
     Dates: start: 20140916, end: 20140917
  40. FOLINIC ACID [Suspect]
     Active Substance: LEUCOVORIN
     Dosage: 720 MG
     Route: 042
     Dates: start: 20140603, end: 20140604
  41. FOLINIC ACID [Suspect]
     Active Substance: LEUCOVORIN
     Dosage: 800 MG, QW
     Route: 042
     Dates: start: 20140326, end: 20140327
  42. NOVAMINSULFON [Concomitant]
     Active Substance: METAMIZOLE
     Indication: PAIN
     Dosage: 90 DROP, QD
     Route: 048
  43. FOLINIC ACID [Suspect]
     Active Substance: LEUCOVORIN
     Dosage: 720 MG, UNK
     Route: 042
     Dates: start: 20140930, end: 20141001
  44. FOLINIC ACID [Suspect]
     Active Substance: LEUCOVORIN
     Dosage: 640 MG, UNK
     Route: 042
     Dates: start: 20131119, end: 20131120
  45. L-THYROXINE [LEVOTHYROXINE] [Concomitant]
     Indication: HYPOTHYROIDISM
     Dosage: 50 UG, QD
     Route: 048
  46. NEULASTA [Concomitant]
     Active Substance: PEGFILGRASTIM
     Indication: PROPHYLAXIS
     Dosage: 6 MG, QD
     Route: 058
     Dates: start: 20140605, end: 20140703
  47. URO-TABLINEN [Concomitant]
     Indication: URINARY TRACT INFECTION
     Dosage: 50 MG, QD
     Route: 048
  48. OXALIPLATIN. [Suspect]
     Active Substance: OXALIPLATIN
     Indication: COLORECTAL CANCER METASTATIC
     Dosage: 170 MG, UNK
     Route: 042
     Dates: start: 20131008, end: 20131008
  49. OXALIPLATIN. [Suspect]
     Active Substance: OXALIPLATIN
     Dosage: 140 MG, UNK
     Route: 042
     Dates: start: 20131119, end: 20131119
  50. OXALIPLATIN. [Suspect]
     Active Substance: OXALIPLATIN
     Dosage: 170 MG, UNK
     Route: 042
     Dates: start: 20131029, end: 20131029
  51. FLUOROURACIL. [Suspect]
     Active Substance: FLUOROURACIL
     Indication: COLORECTAL CANCER METASTATIC
     Dosage: 720 MG BOLUS, 1800 MG DRIP
     Route: 042
     Dates: start: 20140822, end: 20140823
  52. FLUOROURACIL. [Suspect]
     Active Substance: FLUOROURACIL
     Dosage: 1280 MG, UNK 1900 MG DRIP
     Route: 042
     Dates: start: 20131119, end: 20131120
  53. FLUOROURACIL. [Suspect]
     Active Substance: FLUOROURACIL
     Dosage: UNK, (1600 MG BOLUS,2400 MG DRIP )
     Route: 042
     Dates: start: 20131029, end: 20131030
  54. FLUOROURACIL. [Suspect]
     Active Substance: FLUOROURACIL
     Dosage: UNK,(1280 MG BOLUS,1900 MG DRIP)
     Route: 042
     Dates: start: 20131210, end: 20131211
  55. FLUOROURACIL. [Suspect]
     Active Substance: FLUOROURACIL
     Dosage: UNK,(1280 MG BOLUS,1900 MG DRIP)
     Route: 042
     Dates: start: 20131119, end: 20131120
  56. FLUOROURACIL. [Suspect]
     Active Substance: FLUOROURACIL
     Dosage: UNK, (720 MG BOLUS, 1800 MG DRIP)
     Route: 042
     Dates: start: 20140603, end: 20140604
  57. FOLINIC ACID [Suspect]
     Active Substance: LEUCOVORIN
     Dosage: 800 MG, UNK
     Route: 042
     Dates: start: 20131008, end: 20131009
  58. FOLINIC ACID [Suspect]
     Active Substance: LEUCOVORIN
     Dosage: 800 MG, UNK
     Route: 042
     Dates: start: 20140415, end: 20140416
  59. SODIUM CHLORIDE. [Concomitant]
     Active Substance: SODIUM CHLORIDE
     Indication: BLOOD CREATININE INCREASED
     Dosage: UNK
     Route: 042
     Dates: start: 20141001, end: 20141001

REACTIONS (9)
  - Pulmonary embolism [Recovered/Resolved]
  - Neutropenia [Recovered/Resolved]
  - Diarrhoea [Recovered/Resolved]
  - Death [Fatal]
  - Neutropenia [Recovered/Resolved]
  - Febrile neutropenia [Recovered/Resolved]
  - Anaemia [Recovered/Resolved]
  - Malignant neoplasm progression [Fatal]
  - Neutropenia [Recovered/Resolved]

NARRATIVE: CASE EVENT DATE: 20131030
